FAERS Safety Report 10579196 (Version 2)
Quarter: 2015Q2

REPORT INFORMATION
  Report Type: Spontaneous
  Country: US (occurrence: US)
  Receive Date: 20141112
  Receipt Date: 20150401
  Transmission Date: 20150821
  Serious: Yes (Other)
  Sender: FDA-Public Use
  Company Number: US-UCBSA-2014017255

PATIENT
  Age: 24 Year
  Sex: Female
  Weight: 72.56 kg

DRUGS (5)
  1. OXCARBAZEPINE. [Concomitant]
     Active Substance: OXCARBAZEPINE
     Indication: CONVULSION PROPHYLAXIS
     Dosage: 1000 MG, ONCE DAILY (QD) AT NIGHT
     Route: 048
  2. PRENATAL VITAMINS [Concomitant]
     Active Substance: VITAMINS
     Indication: SUPPLEMENTATION THERAPY
     Dosage: 2 TABS DAILY
     Route: 048
     Dates: start: 201102, end: 20110916
  3. TYLENOL [Concomitant]
     Active Substance: ACETAMINOPHEN
     Indication: HEADACHE
     Dosage: 2-3 WEEKLY
     Route: 048
  4. VIMPAT [Suspect]
     Active Substance: LACOSAMIDE
     Indication: CONVULSION PROPHYLAXIS
     Dosage: 100 MG, 2X/DAY (BID)
     Route: 048
  5. TRILEPTAL [Concomitant]
     Active Substance: OXCARBAZEPINE
     Indication: SEIZURE
     Dosage: 300 MG, 5X/DAY
     Route: 048

REACTIONS (4)
  - Pregnancy [Unknown]
  - Gestational diabetes [Recovered/Resolved]
  - Breast feeding [Unknown]
  - Polymorphic eruption of pregnancy [Recovered/Resolved]

NARRATIVE: CASE EVENT DATE: 201012
